FAERS Safety Report 4362288-5 (Version None)
Quarter: 2004Q2

REPORT INFORMATION
  Report Type: 
  Country: None (occurrence: None)
  Receive Date: 20040520
  Receipt Date: 20040520
  Transmission Date: 20050107
  Serious: Yes (Hospitalization)
  Sender: FDA-Public Use
  Company Number: None

PATIENT
  Sex: Male
  Weight: 84.369 kg

DRUGS (2)
  1. TOPROL-XL [Suspect]
     Indication: ATRIAL FIBRILLATION
     Dosage: 25 MG PO QD
     Route: 048
  2. PAROXETINE HCL [Suspect]
     Dosage: 40 MG PO QD
     Route: 048

REACTIONS (3)
  - BRADYCARDIA [None]
  - HYPERHIDROSIS [None]
  - OXYGEN SATURATION DECREASED [None]
